FAERS Safety Report 4637205-0 (Version None)
Quarter: 2005Q1

REPORT INFORMATION
  Report Type: 
  Country: None (occurrence: None)
  Receive Date: 20050325
  Receipt Date: 20050117
  Transmission Date: 20050727
  Serious: No
  Sender: FDA-Public Use
  Company Number: USA041285083

PATIENT
  Age: 81 Year
  Sex: Female
  Weight: 61 kg

DRUGS (4)
  1. FORTEO [Suspect]
     Indication: OSTEOPOROSIS
     Dosage: 20 MG DAY
     Dates: start: 20040625
  2. DARVOCET-N 100 [Concomitant]
  3. LOPRESSOR [Concomitant]
  4. OXYGEN [Concomitant]

REACTIONS (9)
  - ARTHRALGIA [None]
  - BACK PAIN [None]
  - BONE DENSITY DECREASED [None]
  - CHEST WALL PAIN [None]
  - FATIGUE [None]
  - GAIT DISTURBANCE [None]
  - HYPOTENSION [None]
  - RIB FRACTURE [None]
  - UPPER LIMB FRACTURE [None]
